FAERS Safety Report 13792042 (Version 1)
Quarter: 2017Q3

REPORT INFORMATION
  Report Type: Spontaneous
  Country: US (occurrence: US)
  Receive Date: 20170725
  Receipt Date: 20170725
  Transmission Date: 20171127
  Serious: No
  Sender: FDA-Public Use
  Company Number: US-ROCHE-1931844

PATIENT

DRUGS (1)
  1. OCREVUS [Suspect]
     Active Substance: OCRELIZUMAB
     Indication: PRODUCT USED FOR UNKNOWN INDICATION
     Dosage: ON 04MAY2017 RECEIVED THE PRODUCT OCREVUS (OCRELIZUMAB) PRIOR TO EVENT ONSET
     Route: 065

REACTIONS (1)
  - Throat irritation [Unknown]

NARRATIVE: CASE EVENT DATE: 20170504
